FAERS Safety Report 16278197 (Version 1)
Quarter: 2019Q2

REPORT INFORMATION
  Report Type: Spontaneous
  Country: GB (occurrence: GB)
  Receive Date: 20190506
  Receipt Date: 20190506
  Transmission Date: 20190711
  Serious: Yes (Other)
  Sender: FDA-Public Use
  Company Number: GB-MYLANLABS-2019M1042926

PATIENT
  Age: 52 Year
  Sex: Female
  Weight: 94.6 kg

DRUGS (1)
  1. HYDROCHLOROTHIAZIDE/IRBESARTAN [Suspect]
     Active Substance: HYDROCHLOROTHIAZIDE\IRBESARTAN
     Indication: HYPERTENSION
     Dosage: IRBESTARTAN 300MG/ HYDROCHLOROTHIAZIDE 12.5
     Route: 048
     Dates: start: 20080613

REACTIONS (1)
  - Basal cell carcinoma [Recovered/Resolved]
